FAERS Safety Report 20307373 (Version 1)
Quarter: 2022Q1

REPORT INFORMATION
  Report Type: Other
  Country: IN (occurrence: None)
  Receive Date: 20220107
  Receipt Date: 20220107
  Transmission Date: 20220423
  Serious: Yes (Other)
  Sender: FDA-Public Use
  Company Number: IN-ROCHE-2992760

PATIENT

DRUGS (30)
  1. ERLOTINIB [Suspect]
     Active Substance: ERLOTINIB
     Indication: Neoplasm malignant
     Route: 065
  2. CAPECITABINE [Suspect]
     Active Substance: CAPECITABINE
     Indication: Neoplasm malignant
     Route: 065
  3. RITUXIMAB [Suspect]
     Active Substance: RITUXIMAB
     Indication: Neoplasm malignant
     Route: 065
  4. TRASTUZUMAB [Suspect]
     Active Substance: TRASTUZUMAB
     Indication: Neoplasm malignant
     Route: 065
  5. BEVACIZUMAB [Suspect]
     Active Substance: BEVACIZUMAB
     Indication: Neoplasm malignant
     Route: 065
  6. CARBOPLATIN [Suspect]
     Active Substance: CARBOPLATIN
     Indication: Neoplasm malignant
     Route: 065
  7. CISPLATIN [Suspect]
     Active Substance: CISPLATIN
     Indication: Neoplasm malignant
     Route: 065
  8. PACLITAXEL [Suspect]
     Active Substance: PACLITAXEL
     Indication: Neoplasm malignant
     Route: 065
  9. DOCETAXEL [Suspect]
     Active Substance: DOCETAXEL
     Indication: Neoplasm malignant
     Route: 065
  10. OXALIPLATIN [Suspect]
     Active Substance: OXALIPLATIN
     Indication: Neoplasm malignant
     Route: 065
  11. GEMCITABINE [Suspect]
     Active Substance: GEMCITABINE
     Indication: Neoplasm malignant
     Route: 065
  12. CYCLOPHOSPHAMIDE [Suspect]
     Active Substance: CYCLOPHOSPHAMIDE
     Indication: Neoplasm malignant
     Route: 065
  13. FLUOROURACIL [Suspect]
     Active Substance: FLUOROURACIL
     Indication: Neoplasm malignant
     Route: 065
  14. VINCRISTINE [Suspect]
     Active Substance: VINCRISTINE
     Indication: Neoplasm malignant
     Route: 065
  15. DOXORUBICIN [Suspect]
     Active Substance: DOXORUBICIN
     Indication: Neoplasm malignant
     Route: 065
  16. ETOPOSIDE [Suspect]
     Active Substance: ETOPOSIDE
     Indication: Neoplasm malignant
     Route: 065
  17. PEMETREXED [Suspect]
     Active Substance: PEMETREXED
     Indication: Neoplasm malignant
     Route: 065
  18. LEUCOVORIN [Suspect]
     Active Substance: LEUCOVORIN
     Indication: Neoplasm malignant
     Route: 065
  19. METHOTREXATE [Suspect]
     Active Substance: METHOTREXATE
     Indication: Neoplasm malignant
     Route: 065
  20. EPIRUBICIN [Suspect]
     Active Substance: EPIRUBICIN
     Indication: Neoplasm malignant
     Route: 065
  21. IRINOTECAN [Suspect]
     Active Substance: IRINOTECAN
     Indication: Neoplasm malignant
     Route: 065
  22. DACTINOMYCIN [Suspect]
     Active Substance: DACTINOMYCIN
     Indication: Neoplasm malignant
     Route: 065
  23. GEFITINIB [Suspect]
     Active Substance: GEFITINIB
     Indication: Neoplasm malignant
     Route: 065
  24. BORTEZOMIB [Suspect]
     Active Substance: BORTEZOMIB
     Indication: Neoplasm malignant
     Route: 065
  25. ADRIAMYCIN [Suspect]
     Active Substance: DOXORUBICIN HYDROCHLORIDE
     Indication: Neoplasm malignant
     Route: 065
  26. IFOSFAMIDE [Suspect]
     Active Substance: IFOSFAMIDE
     Indication: Neoplasm malignant
     Route: 065
  27. VINORELBINE [Suspect]
     Active Substance: VINORELBINE TARTRATE
     Indication: Neoplasm malignant
     Route: 065
  28. VINBLASTINE [Suspect]
     Active Substance: VINBLASTINE
     Indication: Neoplasm malignant
     Route: 065
  29. IMATINIB [Suspect]
     Active Substance: IMATINIB
     Indication: Neoplasm malignant
     Route: 065
  30. BLEOMYCIN [Suspect]
     Active Substance: BLEOMYCIN SULFATE
     Indication: Neoplasm malignant
     Route: 065

REACTIONS (36)
  - Bicytopenia [Unknown]
  - Anaphylactic reaction [Unknown]
  - Hepatotoxicity [Unknown]
  - Cardiotoxicity [Unknown]
  - Acute kidney injury [Unknown]
  - Pancytopenia [Unknown]
  - Leukopenia [Unknown]
  - Chest pain [Unknown]
  - Alopecia [Unknown]
  - Decreased appetite [Unknown]
  - Anaemia [Unknown]
  - Nausea [Unknown]
  - Vomiting [Unknown]
  - Oral candidiasis [Unknown]
  - Neuropathy peripheral [Unknown]
  - Pruritus [Unknown]
  - Diarrhoea [Unknown]
  - Abdominal pain [Unknown]
  - Thrombocytopenia [Unknown]
  - Rash [Unknown]
  - Headache [Unknown]
  - Myalgia [Unknown]
  - Palmar-plantar erythrodysaesthesia syndrome [Unknown]
  - Dizziness [Unknown]
  - Insomnia [Unknown]
  - Constipation [Unknown]
  - Flushing [Unknown]
  - Mucosal inflammation [Unknown]
  - Pyrexia [Unknown]
  - Gastritis [Unknown]
  - Oropharyngeal pain [Unknown]
  - Urinary tract infection [Unknown]
  - Skin discolouration [Unknown]
  - Dysgeusia [Unknown]
  - Cough [Unknown]
  - Chromaturia [Unknown]
